FAERS Safety Report 7801680-0 (Version None)
Quarter: 2011Q4

REPORT INFORMATION
  Report Type: 
  Country: None (occurrence: None)
  Receive Date: 20111007
  Receipt Date: 20111002
  Transmission Date: 20120403
  Serious: Yes (Other)
  Sender: FDA-Public Use
  Company Number: DE-B.I. PHARMACEUTICALS,INC./RIDGEFIELD-2011-DE-05554DE

PATIENT
  Sex: Female
  Weight: 80 kg

DRUGS (1)
  1. SPIRIVA [Suspect]
     Dosage: 5 ANZ
     Route: 048

REACTIONS (1)
  - MEDICATION ERROR [None]
